FAERS Safety Report 19615189 (Version 1)
Quarter: 2021Q3

REPORT INFORMATION
  Report Type: Report from Study
  Country: US (occurrence: US)
  Receive Date: 20210727
  Receipt Date: 20210727
  Transmission Date: 20211014
  Serious: No
  Sender: FDA-Public Use
  Company Number: US-INCYTE CORPORATION-2021IN005482

PATIENT

DRUGS (1)
  1. JAKAFI [Suspect]
     Active Substance: RUXOLITINIB
     Indication: MYELOFIBROSIS
     Dosage: UNK
     Route: 065

REACTIONS (10)
  - Gingival bleeding [Unknown]
  - Contusion [Unknown]
  - Fatigue [Unknown]
  - Haemoglobin decreased [Unknown]
  - Splenomegaly [Unknown]
  - Dyspnoea [Unknown]
  - Chills [Unknown]
  - Abdominal pain upper [Unknown]
  - Early satiety [Unknown]
  - Pyrexia [Unknown]
